FAERS Safety Report 13839647 (Version 1)
Quarter: 2017Q3

REPORT INFORMATION
  Report Type: Spontaneous
  Country: US (occurrence: US)
  Receive Date: 20170805
  Receipt Date: 20170805
  Transmission Date: 20171127
  Serious: Yes (Hospitalization)
  Sender: FDA-Public Use
  Company Number: None

PATIENT
  Age: 61 Year
  Sex: Male

DRUGS (25)
  1. FERROUS SULFATE. [Concomitant]
     Active Substance: FERROUS SULFATE
  2. LANSOPRAZOLE. [Concomitant]
     Active Substance: LANSOPRAZOLE
  3. OLANZAPINE. [Concomitant]
     Active Substance: OLANZAPINE
  4. LORAZEPAM. [Concomitant]
     Active Substance: LORAZEPAM
  5. SENNA [Concomitant]
     Active Substance: SENNA LEAF\SENNOSIDES\SENNOSIDES A AND B
  6. VANCOMYCIN [Concomitant]
     Active Substance: VANCOMYCIN
  7. VASOPRESSIN. [Concomitant]
     Active Substance: VASOPRESSIN
  8. TACROLIMUS. [Suspect]
     Active Substance: TACROLIMUS
     Route: 048
  9. ESCITALOPRAM [Concomitant]
     Active Substance: ESCITALOPRAM OXALATE
  10. OXYCODONE [Concomitant]
     Active Substance: OXYCODONE
  11. PREDNISONE. [Concomitant]
     Active Substance: PREDNISONE
  12. GANCICLOVIR. [Suspect]
     Active Substance: GANCICLOVIR
     Indication: PROPHYLAXIS
     Route: 042
     Dates: start: 20170307, end: 20170413
  13. ALBUTEROL. [Concomitant]
     Active Substance: ALBUTEROL
  14. AMIODARONE [Concomitant]
     Active Substance: AMIODARONE
  15. HEPARIN [Concomitant]
     Active Substance: HEPARIN SODIUM
  16. ASPIRIN. [Concomitant]
     Active Substance: ASPIRIN
  17. BISACODYL. [Concomitant]
     Active Substance: BISACODYL
  18. CASPOFUNGIN [Concomitant]
     Active Substance: CASPOFUNGIN
  19. PIPERACILLIN/TAZOBACTAM [Concomitant]
     Active Substance: PIPERACILLIN SODIUM\TAZOBACTAM SODIUM
  20. INSULIN GLARGINE [Concomitant]
     Active Substance: INSULIN GLARGINE
  21. VORICONAZOLE. [Concomitant]
     Active Substance: VORICONAZOLE
  22. CLONAZEPAM. [Concomitant]
     Active Substance: CLONAZEPAM
  23. FENTANYL. [Concomitant]
     Active Substance: FENTANYL
  24. GABAPENTIN. [Concomitant]
     Active Substance: GABAPENTIN
  25. INSULIN ASPART [Concomitant]
     Active Substance: INSULIN ASPART

REACTIONS (7)
  - Respiratory failure [None]
  - Pneumonia staphylococcal [None]
  - Leukopenia [None]
  - Infection [None]
  - Neutropenia [None]
  - Bronchopulmonary aspergillosis [None]
  - Tracheobronchitis [None]

NARRATIVE: CASE EVENT DATE: 20170413
